FAERS Safety Report 5383585-0 (Version None)
Quarter: 2007Q3

REPORT INFORMATION
  Report Type: 
  Country: None (occurrence: None)
  Receive Date: 20070706
  Receipt Date: 20070625
  Transmission Date: 20080115
  Serious: Yes (Hospitalization)
  Sender: FDA-Public Use
  Company Number: 2007-02134

PATIENT
  Age: 73 Year
  Sex: Male

DRUGS (3)
  1. VELCADE [Suspect]
     Indication: MULTIPLE MYELOMA
     Dosage: 2.10 MG, INTRAVENOUS
     Route: 042
     Dates: start: 20070604, end: 20070614
  2. MELPHALAN [Concomitant]
  3. DEXAMETHASONE 0.5MG TAB [Concomitant]

REACTIONS (3)
  - AORTIC VALVE INCOMPETENCE [None]
  - ATRIAL FIBRILLATION [None]
  - CARDIAC FAILURE [None]
